FAERS Safety Report 4955163-6 (Version None)
Quarter: 2006Q1

REPORT INFORMATION
  Report Type: 
  Country: None (occurrence: None)
  Receive Date: 20060322
  Receipt Date: 20060315
  Transmission Date: 20060701
  Serious: Yes (Other)
  Sender: FDA-Public Use
  Company Number: 2006037354

PATIENT
  Sex: Male
  Weight: 94.3482 kg

DRUGS (1)
  1. ZYRTEC [Suspect]
     Indication: PRURITUS
     Dosage: 10 MG (10 MG, 1 IN 1 D)

REACTIONS (3)
  - CHRONIC OBSTRUCTIVE PULMONARY DISEASE [None]
  - DRUG EFFECT DECREASED [None]
  - WEIGHT DECREASED [None]
